FAERS Safety Report 20584220 (Version 3)
Quarter: 2022Q2

REPORT INFORMATION
  Report Type: Spontaneous
  Country: US (occurrence: US)
  Receive Date: 20220311
  Receipt Date: 20220421
  Transmission Date: 20220721
  Serious: Yes (Other)
  Sender: FDA-Public Use
  Company Number: US-AMERICAN REGENT INC-2022000614

PATIENT
  Age: 41 Year
  Sex: Female

DRUGS (3)
  1. VENOFER [Suspect]
     Active Substance: IRON SUCROSE
     Indication: Iron deficiency anaemia
     Dosage: 300 MG (15 ML OF DRUG) DILUTED WITH 235 ML OF NORMAL SALINE TO A TOTAL VOLUME OF 250 ML
     Route: 042
     Dates: start: 20220307, end: 20220307
  2. VENOFER [Suspect]
     Active Substance: IRON SUCROSE
     Dosage: UNK, SINGLE
     Route: 042
     Dates: start: 20220314, end: 20220314
  3. BENADRYL [Concomitant]
     Active Substance: DIPHENHYDRAMINE HYDROCHLORIDE
     Indication: Product used for unknown indication
     Dosage: UNK, SINGLE
     Route: 065
     Dates: start: 20220314, end: 20220314

REACTIONS (7)
  - Bone pain [Unknown]
  - Burning sensation [Recovered/Resolved]
  - Chromaturia [Recovered/Resolved]
  - Pruritus [Unknown]
  - Myalgia [Unknown]
  - Erythema [Recovered/Resolved]
  - Nausea [Recovered/Resolved]

NARRATIVE: CASE EVENT DATE: 20220307
